FAERS Safety Report 5800508-8 (Version None)
Quarter: 2008Q3

REPORT INFORMATION
  Report Type: 
  Country: None (occurrence: None)
  Receive Date: 20080702
  Receipt Date: 20080702
  Transmission Date: 20090109
  Serious: No
  Sender: FDA-Public Use
  Company Number: None

PATIENT
  Age: 57 Year
  Sex: Male
  Weight: 68.0396 kg

DRUGS (1)
  1. SEPTOCAINE [Suspect]
     Indication: DENTAL OPERATION
     Dosage: 36MG IM
     Route: 030
     Dates: start: 20071127, end: 20071127

REACTIONS (2)
  - PARAESTHESIA ORAL [None]
  - POST PROCEDURAL COMPLICATION [None]
